FAERS Safety Report 13070797 (Version 2)
Quarter: 2017Q1

REPORT INFORMATION
  Report Type: Report from Study
  Country: CA (occurrence: CA)
  Receive Date: 20161229
  Receipt Date: 20170109
  Transmission Date: 20170428
  Serious: Yes (Other)
  Sender: FDA-Public Use
  Company Number: CA-ORION CORPORATION ORION PHARMA-TREX2016-2792

PATIENT
  Age: 66 Year
  Sex: Male

DRUGS (8)
  1. DICLOFENAC [Concomitant]
     Active Substance: DICLOFENAC
     Route: 065
  2. HYDROXYCHLOROQUINE [Suspect]
     Active Substance: HYDROXYCHLOROQUINE
     Route: 065
  3. FOLIC ACID. [Concomitant]
     Active Substance: FOLIC ACID
     Route: 065
  4. METHOTREXATE (TRADE NAME UNKNOWN) [Suspect]
     Active Substance: METHOTREXATE
     Route: 065
     Dates: end: 201006
  5. OMEGA-3 ACIDS [Concomitant]
     Active Substance: OMEGA-3 FATTY ACIDS
     Route: 065
  6. AZATHIOPRINE. [Suspect]
     Active Substance: AZATHIOPRINE
     Route: 065
  7. ENBREL [Suspect]
     Active Substance: ETANERCEPT
     Indication: RHEUMATOID ARTHRITIS
     Route: 065
     Dates: start: 20080808
  8. LEFLUNOMIDE. [Concomitant]
     Active Substance: LEFLUNOMIDE
     Route: 065
     Dates: start: 201009, end: 201507

REACTIONS (11)
  - Joint swelling [Unknown]
  - Hypersensitivity vasculitis [Unknown]
  - Paraesthesia [Unknown]
  - Joint stiffness [Unknown]
  - Rash [Unknown]
  - Arthralgia [Unknown]
  - Erythema [Unknown]
  - Scar [Unknown]
  - Treatment failure [Unknown]
  - Extremity contracture [Unknown]
  - Hypoaesthesia [Unknown]
